FAERS Safety Report 4382392-5 (Version None)
Quarter: 2004Q2

REPORT INFORMATION
  Report Type: 
  Country: None (occurrence: None)
  Receive Date: 20040621
  Receipt Date: 20040621
  Transmission Date: 20050107
  Serious: No
  Sender: FDA-Public Use
  Company Number: None

PATIENT
  Age: 40 Year
  Sex: Female
  Weight: 58.0604 kg

DRUGS (4)
  1. ZYPREXA [Suspect]
     Indication: BIPOLAR I DISORDER
     Dosage: 10 MG-20 MG DAILY ORAL
     Route: 048
     Dates: start: 20031119, end: 20040218
  2. ZYPREXA [Suspect]
     Indication: MANIA
     Dosage: 10 MG-20 MG DAILY ORAL
     Route: 048
     Dates: start: 20031119, end: 20040218
  3. HALOPERIDOL [Concomitant]
  4. LORAZEPAM [Concomitant]

REACTIONS (2)
  - ALANINE AMINOTRANSFERASE INCREASED [None]
  - ASPARTATE AMINOTRANSFERASE INCREASED [None]
